FAERS Safety Report 5760309-6 (Version None)
Quarter: 2008Q2

REPORT INFORMATION
  Report Type: 
  Country: None (occurrence: None)
  Receive Date: 20080605
  Receipt Date: 20070116
  Transmission Date: 20081010
  Serious: Yes (Other)
  Sender: FDA-Public Use
  Company Number: GB-AMGEN-UK284449

PATIENT

DRUGS (6)
  1. NEULASTA [Suspect]
     Indication: CHEMOTHERAPY
  2. CYCLOPHOSPHAMIDE [Concomitant]
  3. DOXORUBICIN HCL [Concomitant]
  4. ONCOVIN [Concomitant]
  5. PREDNISONE TAB [Concomitant]
  6. RITUXAN [Concomitant]

REACTIONS (2)
  - FEBRILE NEUTROPENIA [None]
  - THERAPEUTIC RESPONSE DECREASED [None]
